FAERS Safety Report 23144221 (Version 3)
Quarter: 2024Q1

REPORT INFORMATION
  Report Type: Spontaneous
  Country: US (occurrence: US)
  Receive Date: 20231103
  Receipt Date: 20240105
  Transmission Date: 20240410
  Serious: Yes (Other)
  Sender: FDA-Public Use
  Company Number: US-PFIZER INC-PV202300058118

PATIENT
  Age: 80 Year
  Sex: Female

DRUGS (2)
  1. XELJANZ [Suspect]
     Active Substance: TOFACITINIB CITRATE
     Indication: Rheumatoid arthritis
     Dosage: TAKE 1 TABLET (5 MG TOTAL) BY MOUTH EVERYDAY
     Route: 048
     Dates: start: 201910
  2. ELIQUIS [Concomitant]
     Active Substance: APIXABAN
     Indication: Coagulopathy
     Dosage: UNK

REACTIONS (19)
  - Cellulitis [Unknown]
  - Joint stiffness [Unknown]
  - Arthralgia [Unknown]
  - Hand deformity [Unknown]
  - Foot deformity [Unknown]
  - Gait disturbance [Unknown]
  - Fatigue [Unknown]
  - Alopecia [Unknown]
  - Diarrhoea [Unknown]
  - Memory impairment [Unknown]
  - Lymphopenia [Unknown]
  - Nodule [Unknown]
  - Muscular weakness [Unknown]
  - Neck pain [Unknown]
  - Musculoskeletal stiffness [Unknown]
  - Hyperkeratosis [Unknown]
  - Arthropathy [Unknown]
  - Bone swelling [Unknown]
  - Product dispensing error [Unknown]
